FAERS Safety Report 10043423 (Version 1)
Quarter: 2014Q1

REPORT INFORMATION
  Report Type: Spontaneous
  Country: US (occurrence: US)
  Receive Date: 20140328
  Receipt Date: 20140328
  Transmission Date: 20141002
  Serious: No
  Sender: FDA-Public Use
  Company Number: US-PFIZER INC-2014087264

PATIENT
  Sex: Female

DRUGS (4)
  1. EFFEXOR XR [Suspect]
     Indication: BIPOLAR I DISORDER
     Dosage: UNK
  2. LATUDA [Suspect]
     Indication: BIPOLAR I DISORDER
     Dosage: 60 MG, UNK
     Route: 048
  3. LATUDA [Suspect]
     Dosage: 40 MG, UNK
  4. LAMICTAL [Suspect]
     Dosage: UNK

REACTIONS (2)
  - Akathisia [Unknown]
  - Agitation [Unknown]
